FAERS Safety Report 24815592 (Version 2)
Quarter: 2025Q2

REPORT INFORMATION
  Report Type: Spontaneous
  Country: GB (occurrence: GB)
  Receive Date: 20250107
  Receipt Date: 20250602
  Transmission Date: 20250717
  Serious: Yes (Other)
  Sender: TORRENT PHARMA INC.
  Company Number: None

PATIENT
  Age: 37 Year
  Sex: Male
  Weight: 109 kg

DRUGS (5)
  1. PRAMIPEXOLE [Suspect]
     Active Substance: PRAMIPEXOLE
     Indication: Restless legs syndrome
     Route: 065
     Dates: start: 20090601
  2. ALLOPURINOL [Concomitant]
     Active Substance: ALLOPURINOL
     Indication: Gout
  3. ATORVASTATIN [Concomitant]
     Active Substance: ATORVASTATIN
     Indication: Blood cholesterol
     Route: 065
  4. GABAPENTIN [Concomitant]
     Active Substance: GABAPENTIN
     Indication: Arthralgia
     Route: 065
  5. VITAMIN D SUBSTANCES [Concomitant]
     Indication: Vitamin D deficiency
     Route: 065

REACTIONS (4)
  - Product prescribing error [Unknown]
  - Restless leg augmentation syndrome [Not Recovered/Not Resolved]
  - Impulsive behaviour [Not Recovered/Not Resolved]
  - Impulse-control disorder [Unknown]

NARRATIVE: CASE EVENT DATE: 20230101
